FAERS Safety Report 5276548-7 (Version None)
Quarter: 2007Q1

REPORT INFORMATION
  Report Type: 
  Country: None (occurrence: None)
  Receive Date: 20061213
  Receipt Date: 20040129
  Transmission Date: 20070707
  Serious: Yes (Hospitalization)
  Sender: FDA-Public Use
  Company Number: 2004UW01578

PATIENT
  Age: 29 Year
  Sex: Male

DRUGS (2)
  1. SEROQUEL [Suspect]
     Indication: SCHIZOPHRENIA
     Dosage: 100 MG DAILY PO
     Route: 048
     Dates: start: 20030422
  2. SEROQUEL [Suspect]
     Indication: SCHIZOPHRENIA
     Dosage: DOSE INCREASED

REACTIONS (1)
  - DRUG INEFFECTIVE [None]
